FAERS Safety Report 5428639-5 (Version None)
Quarter: 2007Q3

REPORT INFORMATION
  Report Type: 
  Country: None (occurrence: None)
  Receive Date: 20070828
  Receipt Date: 20070820
  Transmission Date: 20080115
  Serious: Yes (Other)
  Sender: FDA-Public Use
  Company Number: FR-SHR-FR-2005-026562

PATIENT
  Age: 67 Year
  Sex: Male

DRUGS (8)
  1. BETAFERON [Suspect]
     Indication: PROGRESSIVE MULTIPLE SCLEROSIS
     Dosage: 8 MIU, 3X/WEEK
     Route: 058
     Dates: start: 20000101, end: 20051111
  2. BETAFERON [Suspect]
     Dosage: 8 MIU, UNK
     Route: 058
     Dates: start: 20060306
  3. DIAMICRON [Concomitant]
     Route: 048
  4. IRBESARTAN [Concomitant]
  5. METFORMINE ^MERCK^ [Concomitant]
     Route: 048
  6. ZOXAN-TZ [Concomitant]
  7. FENOFIBRATE [Concomitant]
  8. ANTIBIOTICS [Concomitant]
     Indication: BRONCHITIS
     Dosage: UNK, UNK
     Route: 048
     Dates: start: 20051125

REACTIONS (5)
  - ERYTHEMA [None]
  - HAEMORRHAGE SUBCUTANEOUS [None]
  - OEDEMA PERIPHERAL [None]
  - PETECHIAE [None]
  - SKIN EXFOLIATION [None]
